FAERS Safety Report 6954715-1 (Version None)
Quarter: 2010Q3

REPORT INFORMATION
  Report Type: 
  Country: None (occurrence: None)
  Receive Date: 20100829
  Receipt Date: 20080828
  Transmission Date: 20110219
  Serious: No
  Sender: FDA-Public Use
  Company Number: US-ALLERGAN-0810960US

PATIENT
  Sex: Female

DRUGS (1)
  1. FML [Suspect]
     Indication: PRODUCT USED FOR UNKNOWN INDICATION
     Dosage: 1 GTT, BID
     Route: 047

REACTIONS (4)
  - EYE PAIN [None]
  - EYELID OEDEMA [None]
  - EYELIDS PRURITUS [None]
  - OROPHARYNGEAL PAIN [None]
